FAERS Safety Report 7527446-7 (Version None)
Quarter: 2011Q2

REPORT INFORMATION
  Report Type: 
  Country: None (occurrence: None)
  Receive Date: 20110603
  Receipt Date: 20110518
  Transmission Date: 20111010
  Serious: Yes (Other)
  Sender: FDA-Public Use
  Company Number: JPI-P-015115

PATIENT
  Age: 50 Year
  Sex: Female

DRUGS (1)
  1. XYREM [Suspect]
     Indication: SLEEP DISORDER
     Dosage: 6 GM (3 GM,2 IN 1 D),ORAL
     Route: 048
     Dates: start: 20110514, end: 20110501

REACTIONS (6)
  - BURNING SENSATION [None]
  - INSOMNIA [None]
  - SUICIDAL IDEATION [None]
  - ANXIETY [None]
  - FEELING JITTERY [None]
  - MENTAL DISORDER [None]
